FAERS Safety Report 10177721 (Version 1)
Quarter: 2014Q2

REPORT INFORMATION
  Report Type: Spontaneous
  Country: US (occurrence: US)
  Receive Date: 20140516
  Receipt Date: 20140516
  Transmission Date: 20141212
  Serious: No
  Sender: FDA-Public Use
  Company Number: US-SA-2014SA042794

PATIENT
  Age: 69 Year
  Sex: Female

DRUGS (3)
  1. APIDRA SOLOSTAR [Suspect]
     Indication: TYPE 2 DIABETES MELLITUS
     Dosage: DOSE:12 UNIT(S)
     Route: 065
     Dates: start: 201403
  2. APIDRA SOLOSTAR [Suspect]
     Indication: TYPE 2 DIABETES MELLITUS
     Dosage: DOSE:14 UNIT(S)
     Route: 065
     Dates: start: 201401, end: 201403
  3. LANTUS SOLOSTAR [Suspect]
     Indication: DIABETES MELLITUS
     Route: 065

REACTIONS (7)
  - Joint swelling [Not Recovered/Not Resolved]
  - Arthralgia [Unknown]
  - Myalgia [Unknown]
  - Insomnia [Unknown]
  - Hyperhidrosis [Unknown]
  - Mass [Unknown]
  - Product quality issue [Unknown]
